FAERS Safety Report 16015708 (Version 3)
Quarter: 2019Q1

REPORT INFORMATION
  Report Type: Spontaneous
  Country: US (occurrence: US)
  Receive Date: 20190228
  Receipt Date: 20190328
  Transmission Date: 20190418
  Serious: Yes (Other)
  Sender: FDA-Public Use
  Company Number: US-AUROBINDO-AUR-APL-2019-009442

PATIENT

DRUGS (1)
  1. METFORMIN 500MG [Suspect]
     Active Substance: METFORMIN HYDROCHLORIDE
     Indication: TYPE 2 DIABETES MELLITUS
     Dosage: UNK UNK, TWO TIMES A DAY
     Route: 048
     Dates: start: 20180924, end: 20190924

REACTIONS (7)
  - Abdominal infection [Unknown]
  - Kidney infection [Unknown]
  - Cystitis [Unknown]
  - Oropharyngeal pain [Unknown]
  - Throat irritation [Recovered/Resolved]
  - Feeling abnormal [Unknown]
  - Gastrointestinal disorder [Unknown]
